FAERS Safety Report 4289494-2 (Version None)
Quarter: 2004Q1

REPORT INFORMATION
  Report Type: 
  Country: None (occurrence: None)
  Receive Date: 20040126
  Receipt Date: 20030822
  Transmission Date: 20041129
  Serious: No
  Sender: FDA-Public Use
  Company Number: USA030537527

PATIENT
  Age: 66 Year
  Sex: Female
  Weight: 58 kg

DRUGS (8)
  1. FORTEO [Suspect]
     Indication: OSTEOPOROSIS
     Dosage: 20 UG
     Dates: start: 20030514
  2. EVISTA [Concomitant]
  3. FLONASE [Concomitant]
  4. GLUCOSAMINE [Concomitant]
  5. BABY ASPIRIN (ACETYLSALICYCLIC ACID) [Concomitant]
  6. MULTI-VITAMINS [Concomitant]
  7. MSM(MSM) [Concomitant]
  8. FOSAMAX [Concomitant]

REACTIONS (11)
  - DIZZINESS [None]
  - DYSPEPSIA [None]
  - EXTRASYSTOLES [None]
  - FATIGUE [None]
  - FEELING ABNORMAL [None]
  - HEADACHE [None]
  - INFLUENZA LIKE ILLNESS [None]
  - NAUSEA [None]
  - PAIN IN EXTREMITY [None]
  - PALPITATIONS [None]
  - TENSION HEADACHE [None]
